FAERS Safety Report 8554495-2 (Version None)
Quarter: 2012Q3

REPORT INFORMATION
  Report Type: 
  Country: None (occurrence: None)
  Receive Date: 20120728
  Receipt Date: 20120728
  Transmission Date: 20120928
  Serious: No
  Sender: FDA-Public Use
  Company Number: None

PATIENT
  Age: 59 Year
  Sex: Female
  Weight: 87.9978 kg

DRUGS (1)
  1. SULFAMETHOXAZOLE AND TRIMETHOPRIM DOUBLE STRENGTH [Suspect]
     Indication: INFECTION
     Dosage: 1 TABLET 2 TIMES PER DAY PO
     Route: 048
     Dates: start: 20120628, end: 20120629

REACTIONS (9)
  - GRIP STRENGTH DECREASED [None]
  - PAIN [None]
  - CREPITATIONS [None]
  - MOVEMENT DISORDER [None]
  - LUPUS-LIKE SYNDROME [None]
  - PROCEDURAL SITE REACTION [None]
  - SYNOVIAL CYST [None]
  - WEIGHT BEARING DIFFICULTY [None]
  - ARTHROPATHY [None]
